FAERS Safety Report 18557375 (Version 1)
Quarter: 2020Q4

REPORT INFORMATION
  Report Type: Spontaneous
  Country: US (occurrence: US)
  Receive Date: 20201129
  Receipt Date: 20201129
  Transmission Date: 20210114
  Serious: Yes (Other)
  Sender: FDA-Public Use
  Company Number: US-DRREDDYS-USA/USA/20/0129131

PATIENT
  Age: 50 Year
  Sex: Female
  Weight: 71.55 kg

DRUGS (2)
  1. DIVALPROEX SODIUM. [Concomitant]
     Active Substance: DIVALPROEX SODIUM
     Indication: PRODUCT USED FOR UNKNOWN INDICATION
  2. SIROLIMUS. [Suspect]
     Active Substance: SIROLIMUS
     Indication: BRAIN NEOPLASM
     Dosage: ONE TABLET TWICE DAILY
     Route: 048

REACTIONS (21)
  - Memory impairment [Unknown]
  - Acne [Unknown]
  - Fatigue [Unknown]
  - Diarrhoea [Unknown]
  - Transfusion [Unknown]
  - Dysphemia [Unknown]
  - Pollakiuria [Unknown]
  - Visual impairment [Unknown]
  - Arthralgia [Unknown]
  - Insomnia [Unknown]
  - Confusional state [Unknown]
  - Hypoacusis [Unknown]
  - Gait disturbance [Unknown]
  - Tremor [Unknown]
  - Initial insomnia [Unknown]
  - Bone pain [Unknown]
  - Joint swelling [Unknown]
  - Urinary tract infection [Unknown]
  - Central nervous system infection [Unknown]
  - Heart rate irregular [Unknown]
  - Speech disorder [Unknown]

NARRATIVE: CASE EVENT DATE: 202001
